FAERS Safety Report 14558639 (Version 3)
Quarter: 2018Q2

REPORT INFORMATION
  Report Type: Spontaneous
  Country: JP (occurrence: JP)
  Receive Date: 20180221
  Receipt Date: 20180425
  Transmission Date: 20180711
  Serious: Yes (Hospitalization, Other)
  Sender: FDA-Public Use
  Company Number: JP-BAYER-2017-232456

PATIENT
  Age: 69 Year
  Sex: Male

DRUGS (6)
  1. OLMESARTAN [Concomitant]
     Active Substance: OLMESARTAN
     Dosage: DAILY DOSE 0.5 DF
     Route: 048
  2. WARFARIN POTASSIUM [Suspect]
     Active Substance: WARFARIN POTASSIUM
     Indication: THROMBOSIS
     Dosage: DAILY DOSE 2 DF
     Route: 048
  3. NEXAVAR [Suspect]
     Active Substance: SORAFENIB
     Indication: HEPATOCELLULAR CARCINOMA
     Dosage: 400 MG, QD
     Route: 048
     Dates: start: 20171121, end: 20171213
  4. MECOBALAMIN [Concomitant]
     Active Substance: METHYLCOBALAMIN
     Dosage: DAILY DOSE 3 DF
     Route: 048
  5. OMEGACIN [Suspect]
     Active Substance: BIAPENEM
     Dosage: DAILY DOSE 1.2 G
     Route: 042
     Dates: start: 20171209, end: 20171219
  6. NEXIUM [Concomitant]
     Active Substance: ESOMEPRAZOLE MAGNESIUM
     Dosage: DAILY DOSE 1 DF
     Route: 048

REACTIONS (6)
  - Diarrhoea [Recovered/Resolved]
  - Inflammatory marker increased [Recovering/Resolving]
  - Malaise [Recovering/Resolving]
  - Nausea [Not Recovered/Not Resolved]
  - Ascites [Recovering/Resolving]
  - Hepatocellular carcinoma [Not Recovered/Not Resolved]

NARRATIVE: CASE EVENT DATE: 20171124
